FAERS Safety Report 7441638-7 (Version None)
Quarter: 2011Q2

REPORT INFORMATION
  Report Type: 
  Country: None (occurrence: None)
  Receive Date: 20110428
  Receipt Date: 20110420
  Transmission Date: 20111010
  Serious: Yes (Hospitalization, Other)
  Sender: FDA-Public Use
  Company Number: US-AMGEN-USASP2011011243

PATIENT
  Age: 70 Year
  Sex: Female
  Weight: 74.83 kg

DRUGS (1)
  1. PROCRIT [Suspect]
     Indication: RENAL FAILURE
     Dosage: 20000 IU, UNK
     Route: 058
     Dates: start: 20080101

REACTIONS (4)
  - BRONCHITIS [None]
  - THROAT CANCER [None]
  - DYSPHAGIA [None]
  - DEHYDRATION [None]
